FAERS Safety Report 17377219 (Version 1)
Quarter: 2020Q1

REPORT INFORMATION
  Report Type: Spontaneous
  Country: FR (occurrence: FR)
  Receive Date: 20200206
  Receipt Date: 20200206
  Transmission Date: 20200409
  Serious: Yes (Hospitalization)
  Sender: FDA-Public Use
  Company Number: FR-ROCHE-2535014

PATIENT
  Age: 59 Year
  Sex: Female
  Weight: 55 kg

DRUGS (8)
  1. TACROLIMUS MONOHYDRATE [Interacting]
     Active Substance: TACROLIMUS
     Indication: PROPHYLAXIS AGAINST TRANSPLANT REJECTION
     Route: 048
  2. BISOPROLOL [Concomitant]
     Active Substance: BISOPROLOL
     Route: 048
  3. ELIQUIS [Concomitant]
     Active Substance: APIXABAN
     Indication: THROMBOSIS
     Route: 048
     Dates: end: 201912
  4. FLUOXETINE [Concomitant]
     Active Substance: FLUOXETINE HYDROCHLORIDE
     Route: 048
     Dates: end: 20191230
  5. CELLCEPT [Suspect]
     Active Substance: MYCOPHENOLATE MOFETIL\MYCOPHENOLATE MOFETIL HYDROCHLORIDE
     Indication: PROPHYLAXIS AGAINST TRANSPLANT REJECTION
     Route: 048
  6. LEVOTHYROXINE SODIQUE [Concomitant]
     Active Substance: LEVOTHYROXINE SODIUM
     Route: 048
  7. BROMAZEPAM [Concomitant]
     Active Substance: BROMAZEPAM
     Route: 048
     Dates: end: 20191230
  8. PREDNISONE. [Interacting]
     Active Substance: PREDNISONE
     Indication: RENAL TRANSPLANT
     Route: 048

REACTIONS (3)
  - Lung disorder [Recovering/Resolving]
  - Drug interaction [Unknown]
  - Cardiac failure [Recovering/Resolving]

NARRATIVE: CASE EVENT DATE: 20191225
